FAERS Safety Report 5238526-3 (Version None)
Quarter: 2007Q1

REPORT INFORMATION
  Report Type: 
  Country: None (occurrence: None)
  Receive Date: 20070215
  Receipt Date: 20070213
  Transmission Date: 20070707
  Serious: Yes (Death)
  Sender: FDA-Public Use
  Company Number: JP-GLAXOSMITHKLINE-B0449907A

PATIENT
  Sex: Male

DRUGS (9)
  1. EPIVIR [Suspect]
     Indication: HIV INFECTION
     Dosage: 150MG TWICE PER DAY
     Route: 048
     Dates: start: 20050215, end: 20050617
  2. ZERIT [Concomitant]
     Indication: HIV INFECTION
     Dosage: 60MG PER DAY
     Route: 048
     Dates: start: 20050215, end: 20050617
  3. NORVIR [Concomitant]
     Indication: HIV INFECTION
     Dosage: 100MG PER DAY
     Route: 048
     Dates: start: 20050302, end: 20050617
  4. STOCRIN [Concomitant]
     Indication: HIV INFECTION
     Dosage: 600MG PER DAY
     Route: 048
     Dates: start: 20050215, end: 20050301
  5. REYATAZ [Concomitant]
     Indication: HIV INFECTION
     Dosage: 300MG PER DAY
     Route: 048
     Dates: start: 20050302, end: 20050617
  6. ZITHROMAC [Concomitant]
     Indication: MYCOBACTERIUM AVIUM COMPLEX INFECTION
     Dosage: 600MG PER DAY
     Route: 048
     Dates: start: 20050216, end: 20050617
  7. ISONIAZID [Concomitant]
     Indication: MYCOBACTERIUM AVIUM COMPLEX INFECTION
     Dosage: 300MG PER DAY
     Route: 065
     Dates: start: 20050222, end: 20050617
  8. ETHAMBUTOL HCL [Concomitant]
     Indication: MYCOBACTERIUM AVIUM COMPLEX INFECTION
     Dosage: 750MG PER DAY
     Route: 065
     Dates: start: 20050216, end: 20050617
  9. LEVOFLOXACIN [Concomitant]
     Indication: MYCOBACTERIUM AVIUM COMPLEX INFECTION
     Dosage: 300MG PER DAY
     Route: 065
     Dates: start: 20050222, end: 20050617

REACTIONS (3)
  - EPSTEIN-BARR VIRUS INFECTION [None]
  - OLIGURIA [None]
  - RENAL FAILURE ACUTE [None]
